FAERS Safety Report 13388512 (Version 1)
Quarter: 2017Q1

REPORT INFORMATION
  Report Type: Spontaneous
  Country: KR (occurrence: KR)
  Receive Date: 20170330
  Receipt Date: 20170330
  Transmission Date: 20170429
  Serious: Yes (Other)
  Sender: FDA-Public Use
  Company Number: KR-PFIZER INC-2017128505

PATIENT
  Age: 7 Decade
  Sex: Male

DRUGS (1)
  1. SILDENAFIL CITRATE. [Suspect]
     Active Substance: SILDENAFIL CITRATE
     Dosage: 50 MG, UNK (15 50-MG TABLETS (750MG) OF SILDENAFIL 2 DAYS)

REACTIONS (7)
  - Overdose [Unknown]
  - Vision blurred [Recovered/Resolved]
  - Retinogram abnormal [Recovered/Resolved]
  - Macular reflex abnormal [Recovered/Resolved]
  - Retinal toxicity [Recovered/Resolved]
  - Visual field defect [Recovered/Resolved]
  - Colour blindness [Recovered/Resolved]
